FAERS Safety Report 16428144 (Version 2)
Quarter: 2019Q3

REPORT INFORMATION
  Report Type: Spontaneous
  Country: US (occurrence: US)
  Receive Date: 20190613
  Receipt Date: 20190715
  Transmission Date: 20191004
  Serious: No
  Sender: FDA-Public Use
  Company Number: US-SA-2019SA160379

PATIENT
  Age: 81 Year
  Sex: Female

DRUGS (1)
  1. PRALUENT [Suspect]
     Active Substance: ALIROCUMAB

REACTIONS (4)
  - Swollen tongue [Recovered/Resolved]
  - Blood cholesterol decreased [Unknown]
  - Oral herpes [Recovered/Resolved]
  - Blood triglycerides decreased [Unknown]

NARRATIVE: CASE EVENT DATE: 20190430
